FAERS Safety Report 6310350-X (Version None)
Quarter: 2009Q3

REPORT INFORMATION
  Report Type: 
  Country: None (occurrence: None)
  Receive Date: 20090811
  Receipt Date: 20090731
  Transmission Date: 20100115
  Serious: Yes (Hospitalization)
  Sender: FDA-Public Use
  Company Number: 2009US002998

PATIENT
  Age: 77 Year
  Sex: Female
  Weight: 59 kg

DRUGS (6)
  1. AMEVIVE [Suspect]
     Indication: PSORIASIS
     Dosage: 15 MG, WEEKLY, IV NOS
     Route: 042
     Dates: start: 20031021
  2. BETA BLOCKING AGENTS [Concomitant]
  3. LOPRESSOR [Concomitant]
  4. ASPIRIN [Concomitant]
  5. MEVACOR [Concomitant]
  6. PRILOSEC (OMEPRAZOLE MAGNESIUM) [Concomitant]

REACTIONS (1)
  - ASTHMA [None]
